FAERS Safety Report 5824102-8 (Version None)
Quarter: 2008Q3

REPORT INFORMATION
  Report Type: 
  Country: None (occurrence: None)
  Receive Date: 20080728
  Receipt Date: 20080716
  Transmission Date: 20090109
  Serious: Yes (Other)
  Sender: FDA-Public Use
  Company Number: PHHY2008DE12929

PATIENT
  Sex: Male

DRUGS (6)
  1. RASILEZ [Suspect]
     Indication: HYPERTENSION
     Dosage: 0.5 DF, BID
     Dates: start: 20080303, end: 20080420
  2. ALLOPURINOL [Concomitant]
     Dosage: 0.5 DF/D
  3. MICARDIS [Concomitant]
     Dosage: 1 DF/D
  4. INDAPAMIDE [Concomitant]
     Dosage: 1 DF/D
  5. CORIFEO [Concomitant]
     Dosage: 0.5 DF, BID
  6. DOXACOR [Concomitant]
     Dosage: 0.25 DF, BID

REACTIONS (1)
  - BLOOD PRESSURE INCREASED [None]
